APPROVED DRUG PRODUCT: ESTRADIOL
Active Ingredient: ESTRADIOL
Strength: 0.075MG/24HR
Dosage Form/Route: SYSTEM;TRANSDERMAL
Application: A211293 | Product #004 | TE Code: AB1
Applicant: AMNEAL PHARMACEUTICALS LLC
Approved: Feb 4, 2019 | RLD: No | RS: No | Type: RX